FAERS Safety Report 7818886-7 (Version None)
Quarter: 2011Q4

REPORT INFORMATION
  Report Type: 
  Country: None (occurrence: None)
  Receive Date: 20111017
  Receipt Date: 20111017
  Transmission Date: 20120403
  Serious: Yes (Hospitalization)
  Sender: FDA-Public Use
  Company Number: None

PATIENT
  Age: 51 Year
  Sex: Male
  Weight: 99.6 kg

DRUGS (2)
  1. CIPROFLOXACIN [Suspect]
     Indication: URTICARIA
     Dosage: 500 MG BID PO
     Route: 048
     Dates: start: 20110926, end: 20111008
  2. CLINDAMYCIN [Suspect]
     Indication: URTICARIA
     Dosage: 300 MG OTHER PO
     Route: 048
     Dates: start: 20110926, end: 20111008

REACTIONS (2)
  - URTICARIA [None]
  - DRUG HYPERSENSITIVITY [None]
